FAERS Safety Report 8246850-5 (Version None)
Quarter: 2012Q1

REPORT INFORMATION
  Report Type: 
  Country: None (occurrence: None)
  Receive Date: 20120330
  Receipt Date: 20120323
  Transmission Date: 20120608
  Serious: No
  Sender: FDA-Public Use
  Company Number: US-PFIZER INC-2012076933

PATIENT
  Sex: Male

DRUGS (4)
  1. ALKA-SELTZER [Suspect]
     Dosage: UNK
  2. BENZATHINE PENICILLIN G [Suspect]
     Dosage: UNK
  3. ASPIRIN [Suspect]
     Dosage: UNK
  4. NAPROXEN (ALEVE) [Suspect]
     Dosage: UNK

REACTIONS (1)
  - DRUG HYPERSENSITIVITY [None]
